FAERS Safety Report 10070235 (Version 2)
Quarter: 2014Q2

REPORT INFORMATION
  Report Type: Report from Study
  Country: BR (occurrence: BR)
  Receive Date: 20140410
  Receipt Date: 20140611
  Transmission Date: 20141212
  Serious: Yes (Other)
  Sender: FDA-Public Use
  Company Number: PHHY2014BR041403

PATIENT
  Sex: Female
  Weight: 80 kg

DRUGS (3)
  1. DIOVAN HCT [Suspect]
     Indication: HYPERTENSION
     Dosage: 1 DF, DAILY (320 MG VALS AND 10 MG HYDR)
     Route: 048
  2. ATENOLOL [Suspect]
     Indication: HYPERTENSION
     Dosage: 1 DF, (50 MG) IN THE MORNING AND AT NIGHT
     Route: 048
  3. PRESSAT [Suspect]
     Indication: HYPERTENSION
     Dosage: 1 DF, (50 MG) AT NIGHT
     Route: 048

REACTIONS (2)
  - Uterine prolapse [Recovering/Resolving]
  - Memory impairment [Recovering/Resolving]
